FAERS Safety Report 5018494-X (Version None)
Quarter: 2006Q2

REPORT INFORMATION
  Report Type: 
  Country: None (occurrence: None)
  Receive Date: 20060530
  Receipt Date: 20060519
  Transmission Date: 20061013
  Serious: Yes (Hospitalization)
  Sender: FDA-Public Use
  Company Number: 2006BI006191

PATIENT
  Age: 46 Year
  Sex: Male

DRUGS (4)
  1. AVONEX [Suspect]
     Indication: MULTIPLE SCLEROSIS
     Dosage: 30 UG; QW; IM
     Route: 030
     Dates: start: 20030911, end: 20060301
  2. PROVIGIL [Concomitant]
  3. ZOLOFT [Concomitant]
  4. VIAGRA [Concomitant]

REACTIONS (1)
  - PANCREATIC CARCINOMA [None]
